FAERS Safety Report 5042834-9 (Version None)
Quarter: 2006Q3

REPORT INFORMATION
  Report Type: 
  Country: None (occurrence: None)
  Receive Date: 20060705
  Receipt Date: 20060606
  Transmission Date: 20061208
  Serious: Yes (Hospitalization)
  Sender: FDA-Public Use
  Company Number: US-GLAXOSMITHKLINE-A0608086A

PATIENT
  Age: 61 Year
  Sex: Male
  Weight: 115.9 kg

DRUGS (9)
  1. REQUIP [Suspect]
     Indication: RESTLESS LEGS SYNDROME
     Dosage: 1MG PER DAY
     Route: 048
     Dates: start: 20060125, end: 20060515
  2. WELLBUTRIN XL [Suspect]
     Indication: DRUG USE FOR UNKNOWN INDICATION
     Dosage: 300MG PER DAY
     Route: 048
     Dates: start: 20050520, end: 20060515
  3. ZOCOR [Concomitant]
     Route: 048
  4. TORSEMIDE [Concomitant]
     Indication: HYPERTENSION
     Route: 048
  5. COZAAR [Concomitant]
     Indication: HYPERTENSION
     Route: 048
  6. METFORMIN [Concomitant]
     Route: 048
  7. FLOMAX [Concomitant]
     Route: 048
  8. PROTONIX [Concomitant]
     Route: 048
  9. NORCO [Concomitant]
     Route: 048

REACTIONS (3)
  - APNOEA [None]
  - CYANOSIS [None]
  - GRAND MAL CONVULSION [None]
